FAERS Safety Report 7636821-1 (Version None)
Quarter: 2011Q3

REPORT INFORMATION
  Report Type: 
  Country: None (occurrence: None)
  Receive Date: 20110726
  Receipt Date: 20110711
  Transmission Date: 20111222
  Serious: Yes (Other)
  Sender: FDA-Public Use
  Company Number: US-ARROW GEN-2011-11062

PATIENT
  Age: 14 Year
  Sex: Male

DRUGS (2)
  1. CABERGOLINE [Suspect]
     Indication: PROLACTINOMA
     Dosage: 2.25 MG, 1/WEEK
  2. BROMOCRIPTINE MESYLATE [Suspect]
     Indication: PROLACTINOMA
     Dosage: 22.5 MG, DAILY

REACTIONS (3)
  - SUICIDE ATTEMPT [None]
  - HYPERSEXUALITY [None]
  - PROMISCUITY [None]
